FAERS Safety Report 9733990 (Version 1)
Quarter: 2013Q4

REPORT INFORMATION
  Report Type: Spontaneous
  Country: FR (occurrence: FR)
  Receive Date: 20131205
  Receipt Date: 20131205
  Transmission Date: 20140711
  Serious: Yes (Hospitalization)
  Sender: FDA-Public Use
  Company Number: PHHY2013FR138524

PATIENT
  Age: 56 Year
  Sex: Female

DRUGS (1)
  1. PACLITAXEL EBEWE [Suspect]
     Indication: BRONCHIAL CARCINOMA
     Dosage: 333 MG, UNK
     Route: 042
     Dates: start: 20100902, end: 20100902

REACTIONS (2)
  - Somnolence [Recovered/Resolved]
  - Hypertension [Recovered/Resolved]
